FAERS Safety Report 10133861 (Version 2)
Quarter: 2014Q2

REPORT INFORMATION
  Report Type: Spontaneous
  Country: JP (occurrence: JP)
  Receive Date: 20140428
  Receipt Date: 20140607
  Transmission Date: 20141212
  Serious: Yes (Death)
  Sender: FDA-Public Use
  Company Number: PHHY2014JP051103

PATIENT
  Age: 90 Year
  Sex: Female

DRUGS (1)
  1. SLOW K [Suspect]
     Indication: HYPOKALAEMIA
     Dosage: UNK UKN, UNK
     Route: 048

REACTIONS (1)
  - Death [Fatal]
